FAERS Safety Report 19185859 (Version 1)
Quarter: 2021Q2

REPORT INFORMATION
  Report Type: Spontaneous
  Country: AU (occurrence: AU)
  Receive Date: 20210427
  Receipt Date: 20210427
  Transmission Date: 20210717
  Serious: Yes (Other)
  Sender: FDA-Public Use
  Company Number: AU-GENERIC HEALTH PTY. LTD.-2021-01167

PATIENT
  Age: 21 Year
  Sex: Female

DRUGS (5)
  1. HYDROXYCHLOROQUINE [Suspect]
     Active Substance: HYDROXYCHLOROQUINE
     Indication: PROGRESSIVE FACIAL HEMIATROPHY
     Dosage: 200 MILLIGRAM, QD
     Route: 065
  2. MYCOPHENOLATE MOFETIL. [Concomitant]
     Active Substance: MYCOPHENOLATE MOFETIL
     Indication: PROGRESSIVE FACIAL HEMIATROPHY
     Dosage: 1 GRAM, BID (CEASED AFTER 10 WEEKS DUE TO INEFFECTIVE)
     Route: 065
  3. METHOTREXATE. [Concomitant]
     Active Substance: METHOTREXATE
     Indication: PROGRESSIVE FACIAL HEMIATROPHY
     Dosage: UNK, 5 TO 20MG WEEKLY
     Route: 065
  4. AZATHIOPRINE. [Concomitant]
     Active Substance: AZATHIOPRINE
     Indication: PROGRESSIVE FACIAL HEMIATROPHY
     Dosage: 150 MILLIGRAM, QD (WAS DISCONTINUED BECAUSE OF TRANSAMINITIS)
     Route: 065
  5. CYCLOSPORINE. [Concomitant]
     Active Substance: CYCLOSPORINE
     Indication: PROGRESSIVE FACIAL HEMIATROPHY
     Dosage: 100 MILLIGRAM, BID (DISCONTINUED BECAUSE OF INTOLERABLE DIZZINESS, NAUSEA AND ABDOMINAL PAIN)
     Route: 065

REACTIONS (1)
  - Tinnitus [Unknown]
